FAERS Safety Report 5275806-X (Version None)
Quarter: 2007Q1

REPORT INFORMATION
  Report Type: 
  Country: None (occurrence: None)
  Receive Date: 20070326
  Receipt Date: 20070314
  Transmission Date: 20070707
  Serious: Yes (Other)
  Sender: FDA-Public Use
  Company Number: GB-GLAXOSMITHKLINE-B0463281A

PATIENT
  Sex: Male

DRUGS (1)
  1. PAROXETINE HCL [Suspect]
     Indication: DEPRESSION
     Route: 065

REACTIONS (11)
  - ANXIETY [None]
  - CRYING [None]
  - DEPENDENCE [None]
  - DRUG WITHDRAWAL SYNDROME [None]
  - ECONOMIC PROBLEM [None]
  - HYPERHIDROSIS [None]
  - IRRITABILITY [None]
  - MANIA [None]
  - PERSONALITY CHANGE [None]
  - PSYCHIATRIC SYMPTOM [None]
  - TREMOR [None]
